FAERS Safety Report 4978150-0 (Version None)
Quarter: 2006Q2

REPORT INFORMATION
  Report Type: 
  Country: None (occurrence: None)
  Receive Date: 20060420
  Receipt Date: 20040727
  Transmission Date: 20061013
  Serious: Yes (Death)
  Sender: FDA-Public Use
  Company Number: JP-ROCHE-375450

PATIENT
  Age: 64 Year
  Sex: Male

DRUGS (6)
  1. PERDIPINE LA [Suspect]
     Indication: DRUG USE FOR UNKNOWN INDICATION
     Route: 065
  2. DIOVAN [Suspect]
     Route: 048
     Dates: start: 20040515
  3. ALLOPURINOL [Suspect]
     Route: 048
     Dates: start: 20040515
  4. ANTIPRURITIC NOS [Suspect]
     Dosage: REPORTED AS ANTIPRURITICS AND ANESTHETICS LOCALLY.
     Route: 061
  5. ANTI-INFLAMMATORY NOS [Suspect]
     Dosage: REPORTED AS ANTIINFLAMMATORY/ANTIRHEUMATIC PRODUCTS.
     Route: 065
  6. FLUITRAN [Concomitant]

REACTIONS (3)
  - MULTI-ORGAN FAILURE [None]
  - PANCYTOPENIA [None]
  - TOXIC EPIDERMAL NECROLYSIS [None]
